FAERS Safety Report 7582317-5 (Version None)
Quarter: 2011Q2

REPORT INFORMATION
  Report Type: 
  Country: None (occurrence: None)
  Receive Date: 20110622
  Receipt Date: 20110610
  Transmission Date: 20111010
  Serious: Yes (Death, Disabling)
  Sender: FDA-Public Use
  Company Number: JP-2011-10872

PATIENT
  Age: 66 Year
  Sex: Male

DRUGS (3)
  1. ANTIHYPERTENSIVES (ANTIHYPERTENSIVES) [Concomitant]
  2. PLETAL [Suspect]
     Indication: LACUNAR INFARCTION
     Dosage: 100 MG MILLIGRAM(S), DAILY DOSE, ORAL, 200 MG MILLIGRAM(S), DAILY DOSE, ORAL
     Route: 048
  3. ASPIRIN [Concomitant]

REACTIONS (3)
  - SEMINOMA [None]
  - INTRACRANIAL ANEURYSM [None]
  - QUADRIPLEGIA [None]
